FAERS Safety Report 23086375 (Version 1)
Quarter: 2023Q4

REPORT INFORMATION
  Report Type: Report from Study
  Country: CO (occurrence: CO)
  Receive Date: 20231019
  Receipt Date: 20231019
  Transmission Date: 20240109
  Serious: Yes (Hospitalization, Other)
  Sender: FDA-Public Use
  Company Number: CO-JNJFOC-20220916834

PATIENT
  Age: 72 Year
  Sex: Female
  Weight: 80 kg

DRUGS (9)
  1. SIMPONI [Suspect]
     Active Substance: GOLIMUMAB
     Indication: Ankylosing spondylitis
     Dosage: LAST ADMINISTRATION DATE WAS 09-JUL-2023
     Route: 058
     Dates: start: 20150430, end: 20230213
  2. PREGABALIN [Concomitant]
     Active Substance: PREGABALIN
  3. ACETAMINOPHEN\CODEINE PHOSPHATE [Concomitant]
     Active Substance: ACETAMINOPHEN\CODEINE PHOSPHATE
  4. ADVIL [Concomitant]
     Active Substance: IBUPROFEN
  5. DOLEX [PARACETAMOL] [Concomitant]
  6. LYRICA [Concomitant]
     Active Substance: PREGABALIN
  7. ACETAMINOPHEN\CAFFEINE [Concomitant]
     Active Substance: ACETAMINOPHEN\CAFFEINE
  8. NAPROXEN [Concomitant]
     Active Substance: NAPROXEN
  9. ACETAMINOPHEN [Concomitant]
     Active Substance: ACETAMINOPHEN

REACTIONS (2)
  - Cervical spinal stenosis [Not Recovered/Not Resolved]
  - Arthritis infective [Unknown]
